FAERS Safety Report 18451961 (Version 2)
Quarter: 2020Q4

REPORT INFORMATION
  Report Type: Spontaneous
  Country: CO (occurrence: CO)
  Receive Date: 20201102
  Receipt Date: 20201210
  Transmission Date: 20210114
  Serious: Yes (Other)
  Sender: FDA-Public Use
  Company Number: CO-AMGEN-COLSP2020174353

PATIENT
  Age: 57 Year
  Sex: Female
  Weight: 65 kg

DRUGS (13)
  1. MVASI [Suspect]
     Active Substance: BEVACIZUMAB-AWWB
     Indication: COLON CANCER
     Dosage: 315 MILLIGRAM/60MIN
     Route: 042
     Dates: start: 20190508
  2. FOSAPREPITANT [Concomitant]
     Active Substance: FOSAPREPITANT
     Indication: COLON CANCER
     Dosage: 150 MILLIGRAM/10ML INJ, QD
     Route: 042
     Dates: start: 20190508
  3. ATROPINE SULFATE. [Concomitant]
     Active Substance: ATROPINE SULFATE
     Indication: COLON CANCER
     Dosage: 1 MILLIGRAM PER MILLILITRE, QD
     Route: 030
     Dates: start: 20190508
  4. FLUOROURACIL. [Concomitant]
     Active Substance: FLUOROURACIL
     Indication: COLON CANCER
     Dosage: 4032 MILLIGRAM
     Dates: start: 20190508
  5. DEXAMETHASONE. [Concomitant]
     Active Substance: DEXAMETHASONE
     Indication: COLON CANCER
     Dosage: 8MG/2ML, 16 MG
     Route: 042
     Dates: start: 20190508
  6. PEGFILGRASTIM [Concomitant]
     Active Substance: PEGFILGRASTIM
     Dosage: 6MG/ 0.6ML, QD
     Route: 058
  7. ENALAPRIL [Concomitant]
     Active Substance: ENALAPRIL
     Indication: HYPERTENSION
     Dosage: 5 MILLIGRAM, QD
     Route: 048
     Dates: start: 20200424
  8. ONDANSETRON [Concomitant]
     Active Substance: ONDANSETRON
     Indication: COLON CANCER
     Dosage: 8 MG/ 4 ML 16 MG, QD
     Route: 042
     Dates: start: 20190508
  9. METFORMIN [Concomitant]
     Active Substance: METFORMIN HYDROCHLORIDE
     Indication: TYPE 2 DIABETES MELLITUS
     Dosage: 50/850 MG, Q12H
     Route: 048
     Dates: start: 20200424
  10. ATORVASTATIN [Concomitant]
     Active Substance: ATORVASTATIN
     Indication: HYPERTENSION
     Dosage: 20 MILLIGRAM, QD
     Route: 048
     Dates: start: 20200424
  11. IRINOTECAN [Concomitant]
     Active Substance: IRINOTECAN
     Indication: COLON CANCER
     Dosage: 302.4 MILLIGRAM
     Route: 042
     Dates: start: 20190508
  12. CALCIUM FOLINATE [Concomitant]
     Active Substance: LEUCOVORIN CALCIUM
     Indication: COLON CANCER
     Dosage: 672 MILLIGRAM
     Route: 042
     Dates: start: 20190508
  13. INSULIN [Concomitant]
     Active Substance: INSULIN NOS
     Indication: TYPE 2 DIABETES MELLITUS
     Dosage: 100 INTERNATIONAL UNIT PER MILLILITRE
     Dates: start: 20200424

REACTIONS (2)
  - Blindness [Not Recovered/Not Resolved]
  - Rash [Not Recovered/Not Resolved]

NARRATIVE: CASE EVENT DATE: 202009
